FAERS Safety Report 8763417 (Version 2)
Quarter: 2012Q4

REPORT INFORMATION
  Report Type: Spontaneous
  Country: US (occurrence: None)
  Receive Date: 20120828
  Receipt Date: 20120828
  Transmission Date: 20130627
  Serious: Yes (Other)
  Sender: FDA-Public Use
  Company Number: USA/USA/12/0025481

PATIENT
  Age: 3 Year
  Sex: Female

DRUGS (4)
  1. DIVALPROEX SODIUM DELAYED RELEASE CAPSULES 125 MG (SPRINKLES) (VALPROATE SEMISODIUM) [Suspect]
     Indication: SEIZURES
     Dosage: 2 capsules at AM and 3 at PM
     Route: 048
     Dates: start: 20120802
  2. CLONAZEPAM ODT (CLONAZEPAM) [Concomitant]
  3. CARNITOR SUGAR FREE 1G/10ML (LEVOCARNITINE) [Concomitant]
  4. KEPRA LIQUID 100MG/ML (LEVETIRACETAM) [Concomitant]

REACTIONS (2)
  - Convulsion [None]
  - Product quality issue [None]
